FAERS Safety Report 24330901 (Version 1)
Quarter: 2024Q3

REPORT INFORMATION
  Report Type: Spontaneous
  Country: PL (occurrence: None)
  Receive Date: 20240918
  Receipt Date: 20240918
  Transmission Date: 20241016
  Serious: Yes (Hospitalization)
  Sender: ASTRAZENECA
  Company Number: 2024A212007

PATIENT
  Age: 23 Year
  Sex: Female
  Weight: 65 kg

DRUGS (2)
  1. QUETIAPINE [Suspect]
     Active Substance: QUETIAPINE
     Indication: Toxicity to various agents
     Dosage: DOSAGE: UNKNOWN
  2. IBUPROFEN [Suspect]
     Active Substance: IBUPROFEN
     Indication: Toxicity to various agents
     Dosage: DOSAGE: UNKNOWN

REACTIONS (3)
  - Agitation [Unknown]
  - Toxicity to various agents [Unknown]
  - Communication disorder [Unknown]

NARRATIVE: CASE EVENT DATE: 20201001
